FAERS Safety Report 6186767-3 (Version None)
Quarter: 2009Q2

REPORT INFORMATION
  Report Type: 
  Country: None (occurrence: None)
  Receive Date: 20090512
  Receipt Date: 20090506
  Transmission Date: 20091009
  Serious: Yes (Hospitalization)
  Sender: FDA-Public Use
  Company Number: DE-ROCHE-631681

PATIENT
  Age: 89 Year
  Sex: Female
  Weight: 58.2 kg

DRUGS (13)
  1. ROCEPHIN [Suspect]
     Dosage: STRUCTUREOF SEPARATE DOSAGES: 1000, NUMBER OF SEPARATE DOSAGES 1
     Route: 042
     Dates: start: 20090220, end: 20090304
  2. CIPROBAY [Suspect]
     Dosage: FORM:FILM COATED TABLET
     Route: 048
     Dates: start: 20090220, end: 20090304
  3. HYDROCHLOROTHIAZIDE [Suspect]
     Indication: HYPERTENSION
     Dosage: STRUCTUREOF SEPARATE DOSAGES: 12.5, NUMBER OF SEPARATE DOSAGES 1
     Route: 048
     Dates: start: 20090220, end: 20090325
  4. ZINNAT [Suspect]
     Indication: DIVERTICULITIS
     Dosage: FORM:FILM COATED TABLET; STRUCTUREOF SEPARATE DOSAGES: 250, NUMBER OF SEPARATE DOSAGES 2
     Route: 048
     Dates: start: 20090304, end: 20090314
  5. AMLODIPINE [Concomitant]
     Indication: HYPERTENSION
     Dosage: STRUCTUREOF SEPARATE DOSAGES: 10, NUMBER OF SEPARATE DOSAGES 1
     Route: 048
     Dates: start: 20090220
  6. ASPIRIN [Concomitant]
     Indication: CARDIOVASCULAR EVENT PROPHYLAXIS
     Dosage: STRUCTUREOF SEPARATE DOSAGES: 100, NUMBER OF SEPARATE DOSAGES 1
     Route: 048
     Dates: start: 20090225
  7. FOLSAN [Concomitant]
     Indication: ANAEMIA
     Dosage: STRUCTUREOF SEPARATE DOSAGES: 5, NUMBER OF SEPARATE DOSAGES 1
     Route: 048
     Dates: start: 20090304
  8. METOCLOPRAMIDE [Concomitant]
     Dosage: STRUCTUREOF SEPARATE DOSAGES: 2.5, NUMBER OF SEPARATE DOSAGES 3,DOSAGE TEXT:10
     Route: 048
     Dates: start: 20090217, end: 20090320
  9. EMBOLEX [Concomitant]
     Dosage: STRUCTUREOF SEPARATE DOSAGES: 0.5, NUMBER OF SEPARATE DOSAGES 1
     Route: 058
     Dates: start: 20090201
  10. PANTOZOL [Concomitant]
     Dosage: STRUCTUREOF SEPARATE DOSAGES: 40, NUMBER OF SEPARATE DOSAGES 1
     Route: 048
     Dates: start: 20090217
  11. PEROCUR FORTE [Concomitant]
     Dosage: STRUCTUREOF SEPARATE DOSAGES: 1, NUMBER OF SEPARATE DOSAGES 2
     Route: 048
     Dates: start: 20090315, end: 20090320
  12. RAMIPRIL [Concomitant]
     Indication: HYPERTENSION
     Dosage: STRUCTUREOF SEPARATE DOSAGES: 2.5, NUMBER OF SEPARATE DOSAGES 1
     Route: 048
     Dates: start: 20090217
  13. VITAMIN B DUO [Concomitant]
     Dosage: FORM: FILM COATED TABLET;STRUCTUREOF SEPARATE DOSAGES: 1, NUMBER OF SEPARATE DOSAGES 1
     Route: 048
     Dates: start: 20090304

REACTIONS (2)
  - DEHYDRATION [None]
  - GASTROENTERITIS CLOSTRIDIAL [None]
